FAERS Safety Report 11102778 (Version 1)
Quarter: 2015Q2

REPORT INFORMATION
  Report Type: Spontaneous
  Country: US (occurrence: None)
  Receive Date: 20150507
  Receipt Date: 20150507
  Transmission Date: 20150821
  Serious: Yes (Hospitalization)
  Sender: FDA-Public Use
  Company Number: 15AE019

PATIENT
  Age: 56 Year
  Sex: Female

DRUGS (2)
  1. WAL-PHED [Suspect]
     Active Substance: PSEUDOEPHEDRINE HYDROCHLORIDE
     Indication: HEADACHE
  2. LOSARTAN [Concomitant]
     Active Substance: LOSARTAN

REACTIONS (3)
  - Heart rate increased [None]
  - Headache [None]
  - Malaise [None]

NARRATIVE: CASE EVENT DATE: 20150222
